FAERS Safety Report 4807399-2 (Version None)
Quarter: 2005Q4

REPORT INFORMATION
  Report Type: 
  Country: None (occurrence: None)
  Receive Date: 20051024
  Receipt Date: 20050705
  Transmission Date: 20060501
  Serious: Yes (Hospitalization)
  Sender: FDA-Public Use
  Company Number: US-MERCK-0507USA00677

PATIENT
  Age: 47 Year
  Sex: Female
  Weight: 75 kg

DRUGS (12)
  1. VIOXX [Suspect]
     Indication: OSTEOARTHRITIS
     Route: 048
     Dates: start: 20030909, end: 20041006
  2. VIOXX [Suspect]
     Indication: BACK PAIN
     Route: 048
     Dates: start: 20030909, end: 20041006
  3. HYDROCODONE BITARTRATE [Concomitant]
     Indication: BACK PAIN
     Route: 065
     Dates: start: 20020201, end: 20050317
  4. ALPRAZOLAM [Concomitant]
     Indication: PANIC ATTACK
     Route: 065
     Dates: start: 20021230, end: 20050218
  5. PLAVIX [Concomitant]
     Indication: ARTERIOSCLEROSIS
     Route: 065
     Dates: start: 20030101
  6. SYNTHROID [Concomitant]
     Indication: HYPOTHYROIDISM
     Route: 065
     Dates: start: 20030202, end: 20050311
  7. CELEBREX [Concomitant]
     Indication: OSTEOARTHRITIS
     Route: 065
     Dates: start: 20030203, end: 20050307
  8. CELEBREX [Concomitant]
     Indication: BACK PAIN
     Route: 065
     Dates: start: 20030203, end: 20050307
  9. LIDA-MANTLE [Concomitant]
     Indication: DERMATITIS
     Route: 065
     Dates: start: 20040630
  10. NIASPAN [Concomitant]
     Indication: BLOOD CHOLESTEROL INCREASED
     Route: 065
     Dates: start: 20040702
  11. LIPITOR [Concomitant]
     Indication: HYPERLIPIDAEMIA
     Route: 065
     Dates: start: 20040227, end: 20050225
  12. NICOTROL [Concomitant]
     Route: 065

REACTIONS (10)
  - ACUTE MYOCARDIAL INFARCTION [None]
  - AORTIC ARTERIOSCLEROSIS [None]
  - CHEST DISCOMFORT [None]
  - CORONARY ARTERY DISEASE [None]
  - DEPRESSION [None]
  - DERMATITIS [None]
  - DRUG HYPERSENSITIVITY [None]
  - DYSLIPIDAEMIA [None]
  - DYSPNOEA EXERTIONAL [None]
  - SUICIDAL IDEATION [None]
